FAERS Safety Report 21316841 (Version 2)
Quarter: 2022Q4

REPORT INFORMATION
  Report Type: Spontaneous
  Country: US (occurrence: US)
  Receive Date: 20220911
  Receipt Date: 20221115
  Transmission Date: 20230113
  Serious: No
  Sender: FDA-Public Use
  Company Number: US-SA-SAC20220819000847

PATIENT
  Age: 26 Year
  Sex: Male

DRUGS (1)
  1. DUPIXENT [Suspect]
     Active Substance: DUPILUMAB
     Indication: Dermatitis
     Dosage: 300 MG, QOW
     Route: 058
     Dates: start: 20220427

REACTIONS (4)
  - Dermatitis [Unknown]
  - Asthma [Unknown]
  - Impaired quality of life [Unknown]
  - Product use in unapproved indication [Unknown]
